FAERS Safety Report 5106332-6 (Version None)
Quarter: 2006Q3

REPORT INFORMATION
  Report Type: 
  Country: None (occurrence: None)
  Receive Date: 20060918
  Receipt Date: 20060713
  Transmission Date: 20061208
  Serious: Yes (Other)
  Sender: FDA-Public Use
  Company Number: US-BAYER-200612985BCC

PATIENT
  Age: 79 Year
  Sex: Male
  Weight: 77 kg

DRUGS (11)
  1. PHILLIPS MILK OF MAGNESIA CHERRY [Suspect]
     Indication: CONSTIPATION
     Dosage: TOTAL DAILY DOSE: 60 ML
     Route: 048
     Dates: start: 20060713, end: 20060713
  2. ASPIRIN [Suspect]
     Indication: PROPHYLAXIS
     Dosage: TOTAL DAILY DOSE: 325 MG  UNIT DOSE: 325 MG
     Route: 048
     Dates: start: 19850101
  3. ATENOLOL [Concomitant]
  4. SYNTHROID [Concomitant]
  5. NIACIN [Concomitant]
  6. ISOSORBIDE MONONITRATE [Concomitant]
  7. LIPITOR [Concomitant]
  8. FLOMAX [Concomitant]
  9. MAPROTILINE [Concomitant]
  10. ZOLOFT [Concomitant]
  11. ULTRAESE [Concomitant]

REACTIONS (2)
  - DIARRHOEA [None]
  - DIARRHOEA HAEMORRHAGIC [None]
